FAERS Safety Report 8094993-1 (Version None)
Quarter: 2012Q1

REPORT INFORMATION
  Report Type: 
  Country: None (occurrence: None)
  Receive Date: 20120131
  Receipt Date: 20120124
  Transmission Date: 20120608
  Serious: Yes (Death, Hospitalization)
  Sender: FDA-Public Use
  Company Number: US-CELGENEUS-163-21880-12010957

PATIENT
  Age: 71 Year
  Sex: Female
  Weight: 75.6 kg

DRUGS (25)
  1. CALCIUM CARBONATE [Concomitant]
     Dosage: 500 MILLIGRAM
     Route: 048
  2. ONDANSETRON [Concomitant]
     Indication: NAUSEA
     Dosage: 40 MILLIGRAM
     Route: 048
  3. MS CONTIN [Concomitant]
     Dosage: 15 MILLIGRAM
     Route: 048
  4. REVLIMID [Suspect]
     Dosage: 25 MILLIGRAM
     Route: 048
     Dates: start: 20111230, end: 20120106
  5. ASPIRIN [Concomitant]
     Dosage: 325 MILLIGRAM
     Route: 048
     Dates: start: 20111111
  6. GABAPENTIN [Concomitant]
     Route: 048
  7. FUROSEMIDE [Concomitant]
     Dosage: 40 MILLIGRAM
     Route: 048
  8. METOPROLOL TARTRATE [Concomitant]
     Route: 065
  9. REVLIMID [Suspect]
     Dosage: 25 MILLIGRAM
     Route: 048
     Dates: start: 20111111
  10. PANTOPRAZOLE SODIUM [Concomitant]
     Dosage: 40 MILLIGRAM
     Route: 048
  11. LANTUS [Concomitant]
     Dosage: 25 UNITS
     Route: 058
  12. TRAMADOL HCL [Concomitant]
     Dosage: 50 MILLIGRAM
     Route: 048
  13. ACYCLOVIR [Concomitant]
     Route: 065
  14. ATORVASTATIN [Concomitant]
     Route: 065
  15. LIDOCAINE [Concomitant]
     Route: 061
  16. BORTEZOMIB [Suspect]
     Dosage: 1.3 MILLIGRAM/SQ. METER
     Route: 041
     Dates: start: 20111230, end: 20120103
  17. ACETAMINOPHEN [Concomitant]
     Indication: PAIN
     Dosage: 650 MILLIGRAM
     Route: 048
  18. ENALAPRIL MALEATE [Concomitant]
     Route: 065
  19. BORTEZOMIB [Suspect]
     Indication: MULTIPLE MYELOMA
     Dosage: 1.3 MILLIGRAM/SQ. METER
     Route: 041
     Dates: start: 20111111
  20. DEXAMETHASONE [Suspect]
     Dosage: 20 MILLIGRAM
     Route: 048
     Dates: start: 20111230, end: 20120106
  21. ASPIRIN [Concomitant]
     Route: 048
     Dates: start: 20111230
  22. DOCUSATE SODIUM [Concomitant]
     Dosage: 100 MILLIGRAM
     Route: 048
  23. CLOPIDOGREL [Concomitant]
     Dosage: 75 MILLIGRAM
     Route: 048
  24. DEXAMETHASONE [Suspect]
     Indication: MULTIPLE MYELOMA
     Dosage: 20 MILLIGRAM
     Route: 048
     Dates: start: 20111111
  25. PERCOCET [Concomitant]
     Route: 065

REACTIONS (6)
  - RENAL FAILURE CHRONIC [None]
  - ENTEROCOLITIS INFECTIOUS [None]
  - DECREASED APPETITE [None]
  - DIARRHOEA [None]
  - DEHYDRATION [None]
  - DEATH [None]
